FAERS Safety Report 25498017 (Version 1)
Quarter: 2025Q3

REPORT INFORMATION
  Report Type: Report from Study
  Country: EU (occurrence: EU)
  Receive Date: 20250701
  Receipt Date: 20250701
  Transmission Date: 20251020
  Serious: Yes (Other)
  Sender: JOHNSON AND JOHNSON
  Company Number: EU-JNJFOC-20250629985

PATIENT

DRUGS (1)
  1. REMICADE [Suspect]
     Active Substance: INFLIXIMAB
     Indication: Inflammatory bowel disease
     Route: 041

REACTIONS (12)
  - Acute myeloid leukaemia [Unknown]
  - Tuberculosis [Unknown]
  - Skin lesion [Unknown]
  - Odontogenic cyst [Unknown]
  - Infection [Unknown]
  - Arthralgia [Unknown]
  - Herpes zoster [Unknown]
  - Anaemia [Unknown]
  - Abdominal pain [Unknown]
  - Diarrhoea [Unknown]
  - Infusion related reaction [Unknown]
  - Therapeutic response decreased [Unknown]
